FAERS Safety Report 5281162-3 (Version None)
Quarter: 2007Q1

REPORT INFORMATION
  Report Type: 
  Country: None (occurrence: None)
  Receive Date: 20070323
  Receipt Date: 20070305
  Transmission Date: 20070707
  Serious: Yes (Hospitalization, Disabling)
  Sender: FDA-Public Use
  Company Number: BEPFB-S-20070001

PATIENT
  Age: 55 Year
  Sex: Female

DRUGS (1)
  1. NAVELBINE [Suspect]
     Indication: BREAST CANCER
     Dosage: 10 MG/ML DAILY IV
     Route: 042
     Dates: start: 20060414, end: 20060421

REACTIONS (1)
  - CEREBRAL INFARCTION [None]
